FAERS Safety Report 9520817 (Version 1)
Quarter: 2013Q1

REPORT INFORMATION
  Report Type: Spontaneous
  Country: US (occurrence: None)
  Receive Date: 20130305
  Receipt Date: 20130305
  Transmission Date: 20140127
  Serious: Yes (Hospitalization, Other)
  Sender: FDA-Public Use
  Company Number: 163-21880-12032147

PATIENT
  Age: 74 Year
  Sex: Male

DRUGS (13)
  1. REVLIMID [Suspect]
     Indication: PLASMA CELL MYELOMA
     Dosage: 10 MG, DAILY X 21 DAYS, PO
     Route: 048
     Dates: start: 20120125, end: 20120320
  2. DEXAMETHASONE (DEXAMEHTASONE) (4 MILLIGRAM, TABLETS) [Concomitant]
  3. ZOMETA (ZOLEDRONIC ACID) (UNKNOWN) [Concomitant]
  4. ASA (ACETYLSALICYLIC ACID) (TABLETS)? [Concomitant]
  5. ZOLPIDEM TARTRATE (ZOLPIDEM TARTRATE) (0.5 MILLIGRAM, TABLETS) [Concomitant]
  6. MULTIPLE VITAMINS (MULTIPLE VITAMINS) (CAPSULES) [Concomitant]
  7. RAPAFLO (SILODOSIN) (CAPSULES) [Concomitant]
  8. MEXILETINE (MEXILETINE) (CAPSULES) [Concomitant]
  9. CARVEDILOL (CARVEDILOL) (TABLETS) [Concomitant]
  10. HYDROCODONE-ACETAMINOPHEN (VICODIN) (TABLETS) [Concomitant]
  11. SAW PALMETTO (SERENOA REPENS) (CAPSULES) [Concomitant]
  12. FENOFIBRATE (FENOFIBRATE) (TABLETS) [Concomitant]
  13. VYTORIN (INEGY) (TABLETS) [Concomitant]

REACTIONS (6)
  - Ischaemic stroke [None]
  - Aphasia [None]
  - Memory impairment [None]
  - Cerebrovascular accident [None]
  - Full blood count decreased [None]
  - Hearing impaired [None]
